FAERS Safety Report 6636557-X (Version None)
Quarter: 2010Q1

REPORT INFORMATION
  Report Type: 
  Country: None (occurrence: None)
  Receive Date: 20100310
  Receipt Date: 20100225
  Transmission Date: 20100710
  Serious: Yes (Death)
  Sender: FDA-Public Use
  Company Number: 2010-0586

PATIENT
  Age: 73 Year
  Sex: Male

DRUGS (5)
  1. APOMORPHINE (APOKYN) (APOMORPHINE HYDROCHLORIDE) (APOMORPHINE HYDROCHL [Suspect]
     Indication: PARKINSON'S DISEASE
     Dosage: (2 MG, 1 IN 6 HR), SUBCUTANEOUS
     Route: 058
  2. SELEGELINE (SELEGILINE) [Concomitant]
  3. PERGOLIDE MESYLATE [Concomitant]
  4. LEVODOPA (LEVODOPA) [Concomitant]
  5. DOMPERIDONE (DOMPERIDONE) [Concomitant]

REACTIONS (2)
  - DISEASE PROGRESSION [None]
  - PARKINSON'S DISEASE [None]
